FAERS Safety Report 18960544 (Version 2)
Quarter: 2021Q1

REPORT INFORMATION
  Report Type: Spontaneous
  Country: DO (occurrence: DO)
  Receive Date: 20210302
  Receipt Date: 20210324
  Transmission Date: 20210420
  Serious: Yes (Other)
  Sender: FDA-Public Use
  Company Number: DO-PFIZER INC-2021197205

PATIENT
  Age: 56 Year
  Sex: Female

DRUGS (1)
  1. XELJANZ [Suspect]
     Active Substance: TOFACITINIB CITRATE
     Dosage: UNK

REACTIONS (6)
  - Thyroid mass [Not Recovered/Not Resolved]
  - Pulpitis dental [Unknown]
  - Osteitis [Unknown]
  - Discomfort [Unknown]
  - Toothache [Unknown]
  - Cyst [Unknown]
